FAERS Safety Report 8790710 (Version 2)
Quarter: 2014Q2

REPORT INFORMATION
  Report Type: Spontaneous
  Country: FR (occurrence: None)
  Receive Date: 20120907
  Receipt Date: 20140516
  Transmission Date: 20141212
  Serious: Yes (Hospitalization)
  Sender: FDA-Public Use
  Company Number: FRA-CLT-2012059

PATIENT
  Age: 24 Year
  Sex: Female

DRUGS (8)
  1. CYSTADANE [Suspect]
     Indication: HOMOCYSTINURIA
     Dosage: 4,500 YEARS
     Route: 048
     Dates: start: 200503, end: 200909
  2. VITAMIN B12 [Concomitant]
  3. VITAMIN D3 [Concomitant]
  4. SPECIAFOLDINE [Concomitant]
  5. CYSTEINE [Concomitant]
  6. VITAMIN D [Concomitant]
  7. VITAMIN C [Concomitant]
  8. VITAMIN B6 [Concomitant]

REACTIONS (12)
  - Pulmonary embolism [None]
  - Urinary tract infection [None]
  - Arthralgia [None]
  - Oedema peripheral [None]
  - Maternal exposure during pregnancy [None]
  - Abortion spontaneous [None]
  - Adverse event [None]
  - Treatment noncompliance [None]
  - Pregnancy [None]
  - Nausea [None]
  - Asthenia [None]
  - Mental retardation [None]
